FAERS Safety Report 7633391-9 (Version None)
Quarter: 2011Q3

REPORT INFORMATION
  Report Type: 
  Country: None (occurrence: None)
  Receive Date: 20110725
  Receipt Date: 20101206
  Transmission Date: 20111222
  Serious: No
  Sender: FDA-Public Use
  Company Number: US-BRISTOL-MYERS SQUIBB COMPANY-15428261

PATIENT
  Sex: Male

DRUGS (7)
  1. CYCLOPHOSPHAMIDE [Suspect]
  2. VINCRISTINE [Suspect]
  3. ADRIAMYCIN PFS [Suspect]
  4. METHOTREXATE [Concomitant]
  5. CYTARABINE [Concomitant]
  6. SPRYCEL [Suspect]
     Dosage: INTERRUPTED ON 26NOV10 + RESTARTED(140MG)
     Route: 048
     Dates: start: 20101118
  7. DEXAMETHASONE [Suspect]

REACTIONS (2)
  - NEUTROPENIA [None]
  - PYREXIA [None]
